FAERS Safety Report 7680575-X (Version None)
Quarter: 2011Q3

REPORT INFORMATION
  Report Type: 
  Country: None (occurrence: None)
  Receive Date: 20110812
  Receipt Date: 20110809
  Transmission Date: 20111222
  Serious: Yes (Hospitalization, Other)
  Sender: FDA-Public Use
  Company Number: IT-PFIZER INC-2011152738

PATIENT
  Age: 64 Year
  Sex: Male

DRUGS (7)
  1. ALFUZOSIN HCL [Concomitant]
  2. NORVASC [Concomitant]
  3. TESTOSTERONE PHENYL PROPIONATE INJ [Concomitant]
  4. LEVOTHYROXINE SODIUM [Concomitant]
  5. ZOPRANOL [Concomitant]
  6. NEBIVOLOL HCL [Concomitant]
  7. GENOTROPIN [Suspect]
     Indication: GROWTH HORMONE DEFICIENCY
     Dosage: 0.4 MG, 1X/DAY
     Route: 058
     Dates: start: 20071001, end: 20101101

REACTIONS (1)
  - LIPOSARCOMA [None]
